FAERS Safety Report 4583175-3 (Version None)
Quarter: 2005Q1

REPORT INFORMATION
  Report Type: 
  Country: None (occurrence: None)
  Receive Date: 20050125
  Receipt Date: 20040816
  Transmission Date: 20050727
  Serious: No
  Sender: FDA-Public Use
  Company Number: US_010871161

PATIENT
  Age: 69 Year
  Sex: Female
  Weight: 57 kg

DRUGS (3)
  1. EVISTA [Suspect]
     Indication: OSTEOPOROSIS
     Dosage: 60 MG/L DAY
     Dates: start: 20010503
  2. FORTEO [Suspect]
     Indication: OSTEOPOROSIS
     Dosage: 20 UG/L DAY
     Dates: start: 20040426
  3. FOSAMAX [Concomitant]

REACTIONS (6)
  - CYSTITIS [None]
  - DRY MOUTH [None]
  - HYPOAESTHESIA ORAL [None]
  - LIP DRY [None]
  - OSTEOARTHRITIS [None]
  - TOOTHACHE [None]
